FAERS Safety Report 12580267 (Version 1)
Quarter: 2016Q3

REPORT INFORMATION
  Report Type: Spontaneous
  Country: US (occurrence: US)
  Receive Date: 20160721
  Receipt Date: 20160721
  Transmission Date: 20161109
  Serious: No
  Sender: FDA-Public Use
  Company Number: US-SEPTODONT-201502901

PATIENT
  Sex: Female

DRUGS (1)
  1. LIDOCAINE OINTMENT USP, 5% [Suspect]
     Active Substance: LIDOCAINE
     Indication: LOCAL ANAESTHESIA
     Dosage: CONSUMER STATED THAT SHE HAS BEEN USING THE MEDICATION FIVE TIMES A DAY, TWICE A DAY.
     Route: 061

REACTIONS (1)
  - Dizziness [Recovering/Resolving]
